FAERS Safety Report 25246447 (Version 2)
Quarter: 2025Q2

REPORT INFORMATION
  Report Type: Spontaneous
  Country: US (occurrence: US)
  Receive Date: 20250428
  Receipt Date: 20250512
  Transmission Date: 20250716
  Serious: No
  Sender: MYLAN
  Company Number: US-MYLANLABS-2025M1033780

PATIENT
  Age: 73 Year
  Sex: Female

DRUGS (8)
  1. BREYNA [Suspect]
     Active Substance: BUDESONIDE\FORMOTEROL FUMARATE
     Indication: Asthma
     Dosage: 80 PER 4.5 MICROGRAM,BID (ONE PUFF TWICE A DAY, SOMETIMES TWO PUFFS)
  2. BREYNA [Suspect]
     Active Substance: BUDESONIDE\FORMOTEROL FUMARATE
     Dosage: 80 PER 4.5 MICROGRAM,BID (ONE PUFF TWICE A DAY, SOMETIMES TWO PUFFS)
  3. BREYNA [Suspect]
     Active Substance: BUDESONIDE\FORMOTEROL FUMARATE
     Dosage: 80 PER 4.5 MICROGRAM,BID (ONE PUFF TWICE A DAY, SOMETIMES TWO PUFFS)
     Route: 055
  4. BREYNA [Suspect]
     Active Substance: BUDESONIDE\FORMOTEROL FUMARATE
     Dosage: 80 PER 4.5 MICROGRAM,BID (ONE PUFF TWICE A DAY, SOMETIMES TWO PUFFS)
     Route: 055
  5. BREYNA [Suspect]
     Active Substance: BUDESONIDE\FORMOTEROL FUMARATE
  6. BREYNA [Suspect]
     Active Substance: BUDESONIDE\FORMOTEROL FUMARATE
  7. BREYNA [Suspect]
     Active Substance: BUDESONIDE\FORMOTEROL FUMARATE
     Route: 055
  8. BREYNA [Suspect]
     Active Substance: BUDESONIDE\FORMOTEROL FUMARATE
     Route: 055

REACTIONS (3)
  - Off label use [Unknown]
  - Device delivery system issue [Unknown]
  - Device malfunction [Unknown]

NARRATIVE: CASE EVENT DATE: 20250401
